FAERS Safety Report 11841151 (Version 1)
Quarter: 2015Q4

REPORT INFORMATION
  Report Type: Spontaneous
  Country: US (occurrence: US)
  Receive Date: 20151216
  Receipt Date: 20151216
  Transmission Date: 20160305
  Serious: Yes (Hospitalization)
  Sender: FDA-Public Use
  Company Number: US-PFIZER INC-2015436625

PATIENT
  Age: 67 Year
  Sex: Female

DRUGS (1)
  1. INLYTA [Suspect]
     Active Substance: AXITINIB
     Indication: LUNG NEOPLASM MALIGNANT
     Dosage: 5 MG, 2X/DAY (ONE 5MG TABLET IN THE MORNING AND ONE AT NIGHT)
     Route: 048
     Dates: start: 2015

REACTIONS (4)
  - Vomiting [Unknown]
  - Back pain [Recovered/Resolved]
  - Cholelithiasis [Recovering/Resolving]
  - Product use issue [Unknown]
